FAERS Safety Report 23064709 (Version 1)
Quarter: 2023Q4

REPORT INFORMATION
  Report Type: Spontaneous
  Country: US (occurrence: None)
  Receive Date: 20231013
  Receipt Date: 20231013
  Transmission Date: 20240110
  Serious: Yes (Hospitalization)
  Sender: FDA-Public Use
  Company Number: None

PATIENT
  Age: 72 Year
  Sex: Male
  Weight: 99.7 kg

DRUGS (1)
  1. AMLODIPINE BESYLATE [Suspect]
     Active Substance: AMLODIPINE BESYLATE
     Dosage: FREQUENCY : DAILY;?
     Route: 048
     Dates: end: 20230116

REACTIONS (7)
  - Abdominal pain [None]
  - Oedema peripheral [None]
  - Myalgia [None]
  - Arthralgia [None]
  - Rash [None]
  - Muscular weakness [None]
  - Pruritus [None]

NARRATIVE: CASE EVENT DATE: 20220106
